FAERS Safety Report 17172821 (Version 2)
Quarter: 2020Q1

REPORT INFORMATION
  Report Type: Spontaneous
  Country: US (occurrence: US)
  Receive Date: 20191218
  Receipt Date: 20200331
  Transmission Date: 20200409
  Serious: Yes (Hospitalization, Other)
  Sender: FDA-Public Use
  Company Number: US-009507513-1912USA007736

PATIENT
  Age: 34 Year
  Sex: Female

DRUGS (1)
  1. NUVARING [Suspect]
     Active Substance: ETHINYL ESTRADIOL\ETONOGESTREL
     Indication: CONTRACEPTION
     Dosage: 1 VAGINAL RING, UNK
     Route: 067
     Dates: start: 2012

REACTIONS (3)
  - Abortion spontaneous [Unknown]
  - Unintended pregnancy [Recovered/Resolved]
  - Pregnancy on contraceptive [Recovered/Resolved]

NARRATIVE: CASE EVENT DATE: 2016
